FAERS Safety Report 7101238-5 (Version None)
Quarter: 2010Q4

REPORT INFORMATION
  Report Type: 
  Country: None (occurrence: None)
  Receive Date: 20101115
  Receipt Date: 20101103
  Transmission Date: 20110411
  Serious: Yes (Hospitalization)
  Sender: FDA-Public Use
  Company Number: GB-JNJFOC-20101101778

PATIENT
  Age: 49 Year
  Sex: Female

DRUGS (13)
  1. HALOPERIDOL [Suspect]
     Indication: ILL-DEFINED DISORDER
     Route: 048
  2. FRAGMIN [Suspect]
     Indication: LUNG NEOPLASM MALIGNANT
     Route: 065
  3. RADIATION  THERAPY NOS [Suspect]
     Indication: LUNG NEOPLASM MALIGNANT
     Dosage: GIVEN TO MEDIASTINUM AND RIGHT LUNG
     Route: 065
  4. ONDANSETRON [Concomitant]
     Indication: PRODUCT USED FOR UNKNOWN INDICATION
     Dosage: 4 MG AS NEEDED AT THE TIME OF THE EVENT AND 8- 16 MG AT THE TIME OF CONFUSION
     Route: 048
  5. METOCLOPRAMIDE [Concomitant]
     Indication: PRODUCT USED FOR UNKNOWN INDICATION
     Dosage: 10 MG AS NEEDED AT THE TIME OF GASTRITIS AND 30 MG TOTAL DOSE AT THE TIME OF CONFUSION
     Route: 048
  6. SENNA [Concomitant]
     Indication: PRODUCT USED FOR UNKNOWN INDICATION
     Dosage: 2 UNIT DOSAGE AT THE TIME OF GASTRITIS AND 15 MG TOTAL DAILY DOSE AT THE TIME OF CONFUSION
     Route: 048
  7. MORPHINE SULFATE [Concomitant]
     Indication: PRODUCT USED FOR UNKNOWN INDICATION
     Route: 048
  8. LANSOPRAZOLE [Concomitant]
     Indication: PRODUCT USED FOR UNKNOWN INDICATION
     Route: 048
  9. FOLIC ACID [Concomitant]
     Indication: PRODUCT USED FOR UNKNOWN INDICATION
     Route: 048
  10. CODEINE LINCTUS [Concomitant]
     Indication: PRODUCT USED FOR UNKNOWN INDICATION
     Dosage: UNIT DOSE AS NEEDED
     Route: 048
  11. ORAMORPH SR [Concomitant]
     Indication: PRODUCT USED FOR UNKNOWN INDICATION
     Dosage: UNIT DOSE AS NEEDED
     Route: 048
  12. PARACETAMOL [Concomitant]
     Indication: PRODUCT USED FOR UNKNOWN INDICATION
     Dosage: UNIT DOSE AS NEEDED
     Route: 048
  13. UNKNOWN MEDICATION [Concomitant]
     Indication: PRODUCT USED FOR UNKNOWN INDICATION
     Dosage: UNIT DOSE AS NEEDED
     Route: 048

REACTIONS (8)
  - CONFUSIONAL STATE [None]
  - CONSTIPATION [None]
  - GASTRITIS [None]
  - HALLUCINATION [None]
  - HOT FLUSH [None]
  - PLEURAL EFFUSION [None]
  - PYREXIA [None]
  - TREMOR [None]
